FAERS Safety Report 5638988-3 (Version None)
Quarter: 2008Q1

REPORT INFORMATION
  Report Type: 
  Country: None (occurrence: None)
  Receive Date: 20080222
  Receipt Date: 20080215
  Transmission Date: 20080703
  Serious: Yes (Death, Hospitalization)
  Sender: FDA-Public Use
  Company Number: 2008SP003364

PATIENT
  Age: 58 Year
  Sex: Female
  Weight: 93 kg

DRUGS (10)
  1. TEMODAL [Suspect]
     Indication: GLIOBLASTOMA
     Dosage: 200 MG/M2; QD; PO
     Route: 048
     Dates: start: 20070110
  2. CLEXANE [Concomitant]
  3. BISOPROLOL FUMARATE [Concomitant]
  4. THYRONAJOD [Concomitant]
  5. AMARYL [Concomitant]
  6. SIALOR        /00558301/ [Concomitant]
  7. OMEPRAZOLE [Concomitant]
  8. IBUPROFEN [Concomitant]
  9. NOVALGIN [Concomitant]
  10. OXAZEPAM [Concomitant]

REACTIONS (3)
  - FLANK PAIN [None]
  - GLIOBLASTOMA [None]
  - METASTASIS [None]
